FAERS Safety Report 5317724-4 (Version None)
Quarter: 2007Q2

REPORT INFORMATION
  Report Type: 
  Country: None (occurrence: None)
  Receive Date: 20070507
  Receipt Date: 20070417
  Transmission Date: 20071010
  Serious: No
  Sender: FDA-Public Use
  Company Number: CH-AVENTIS-200713499GDDC

PATIENT
  Age: 41 Year
  Sex: Female

DRUGS (3)
  1. ARAVA [Suspect]
     Indication: RHEUMATOID ARTHRITIS
     Route: 048
     Dates: start: 19980101, end: 20041001
  2. ARAVA [Suspect]
     Route: 048
     Dates: start: 20061001, end: 20070401
  3. ZANTAC [Concomitant]
     Indication: GASTRITIS
     Dosage: DOSE: UNK
     Route: 048

REACTIONS (1)
  - DRUG EXPOSURE DURING PREGNANCY [None]
